FAERS Safety Report 13456463 (Version 3)
Quarter: 2017Q2

REPORT INFORMATION
  Report Type: Spontaneous
  Country: JP (occurrence: JP)
  Receive Date: 20170419
  Receipt Date: 20170526
  Transmission Date: 20170830
  Serious: Yes (Other)
  Sender: FDA-Public Use
  Company Number: JP-009507513-1704JPN001237J

PATIENT
  Age: 71 Year
  Sex: Male
  Weight: 52 kg

DRUGS (4)
  1. ERELSA TABLETS 50MG [Suspect]
     Active Substance: ELBASVIR
     Dosage: 50 MG, QD
     Route: 048
     Dates: start: 2017
  2. GRAZYNA TABLETS 50MG [Suspect]
     Active Substance: GRAZOPREVIR
     Dosage: 100 MG, QD
     Route: 048
     Dates: start: 2017
  3. ERELSA TABLETS 50MG [Suspect]
     Active Substance: ELBASVIR
     Indication: HEPATITIS C
     Dosage: 50 MG, QD
     Route: 048
     Dates: start: 201703, end: 201704
  4. GRAZYNA TABLETS 50MG [Suspect]
     Active Substance: GRAZOPREVIR
     Indication: HEPATITIS C
     Dosage: 100 MG, QD
     Route: 048
     Dates: start: 201703, end: 201704

REACTIONS (1)
  - Arrhythmia [Recovered/Resolved]

NARRATIVE: CASE EVENT DATE: 201704
